FAERS Safety Report 6263032-7 (Version None)
Quarter: 2009Q3

REPORT INFORMATION
  Report Type: 
  Country: None (occurrence: None)
  Receive Date: 20090708
  Receipt Date: 20090708
  Transmission Date: 20100115
  Serious: Yes (Hospitalization, Congenital Anomaly)
  Sender: FDA-Public Use
  Company Number: None

PATIENT
  Sex: Male

DRUGS (2)
  1. PAXIL [Suspect]
     Indication: DEPRESSION
     Dosage: 20 MG ONCE DAILY PO
     Route: 048
     Dates: start: 20000418, end: 20020110
  2. PAXIL [Suspect]
     Indication: PANIC DISORDER
     Dosage: 20 MG ONCE DAILY PO
     Route: 048
     Dates: start: 20000418, end: 20020110

REACTIONS (6)
  - CONGENITAL ANOMALY [None]
  - DEVELOPMENTAL DELAY [None]
  - EYE OPERATION [None]
  - HERNIA REPAIR [None]
  - MATERNAL DRUGS AFFECTING FOETUS [None]
  - SPEECH DISORDER DEVELOPMENTAL [None]
